FAERS Safety Report 7715186-0 (Version None)
Quarter: 2011Q3

REPORT INFORMATION
  Report Type: 
  Country: None (occurrence: None)
  Receive Date: 20110829
  Receipt Date: 20110822
  Transmission Date: 20111222
  Serious: Yes (Hospitalization, Other)
  Sender: FDA-Public Use
  Company Number: JP-BRISTOL-MYERS SQUIBB COMPANY-15998420

PATIENT
  Age: 70 Year
  Sex: Female

DRUGS (14)
  1. IBRUPROFEN [Concomitant]
     Indication: RHEUMATOID ARTHRITIS
  2. MARZULENE-S [Concomitant]
  3. FAMOTIDINE [Concomitant]
  4. ORENCIA [Suspect]
     Indication: RHEUMATOID ARTHRITIS
     Route: 042
     Dates: start: 20110225
  5. NEUROTROPIN [Concomitant]
  6. LIPITOR [Concomitant]
  7. CHINESE HERBS [Concomitant]
  8. MUCOSOLVAN [Concomitant]
  9. FELBINAC [Concomitant]
     Indication: RHEUMATOID ARTHRITIS
  10. URSO 250 [Concomitant]
  11. METHYCOBAL [Concomitant]
  12. MEDROL [Concomitant]
     Indication: RHEUMATOID ARTHRITIS
     Route: 048
  13. ETANERCEPT [Concomitant]
  14. VOLTAREN [Concomitant]
     Indication: RHEUMATOID ARTHRITIS
     Dosage: VOLTAREN TAPE AND VOLTAREN SUPPO

REACTIONS (3)
  - PNEUMONIA [None]
  - PLEURAL EFFUSION [None]
  - ATELECTASIS [None]
